FAERS Safety Report 7488400-7 (Version None)
Quarter: 2011Q2

REPORT INFORMATION
  Report Type: 
  Country: None (occurrence: None)
  Receive Date: 20110518
  Receipt Date: 20110513
  Transmission Date: 20111010
  Serious: Yes (Hospitalization, Other)
  Sender: FDA-Public Use
  Company Number: US-PFIZER INC-2011103684

PATIENT
  Sex: Female
  Weight: 89.8 kg

DRUGS (4)
  1. LAMICTAL [Suspect]
     Dosage: 100 MG, UNK
     Route: 048
  2. LYRICA [Suspect]
     Dosage: 150 MG IN MORNING; 225 MG IN EVENING
  3. LYRICA [Suspect]
     Indication: CONVULSION
     Dosage: UNK
     Route: 048
     Dates: start: 19990101
  4. DILANTIN [Suspect]
     Indication: CONVULSION
     Dosage: 100 MG, 5X/DAILY
     Route: 048
     Dates: start: 19990101

REACTIONS (4)
  - JOINT SWELLING [None]
  - LOWER LIMB FRACTURE [None]
  - HEMIPARESIS [None]
  - BALANCE DISORDER [None]
